FAERS Safety Report 5238199-X (Version None)
Quarter: 2007Q1

REPORT INFORMATION
  Report Type: 
  Country: None (occurrence: None)
  Receive Date: 20070215
  Receipt Date: 20070213
  Transmission Date: 20070707
  Serious: Yes (Other)
  Sender: FDA-Public Use
  Company Number: JP-BAYER-200710119BYL

PATIENT
  Sex: Female

DRUGS (3)
  1. ASPIRIN [Suspect]
     Indication: ANTIPLATELET THERAPY
     Dosage: TOTAL DAILY DOSE: 100 MG  UNIT DOSE: 100 MG
     Route: 048
     Dates: end: 20070101
  2. OLMETEC [Suspect]
     Route: 048
     Dates: end: 20070101
  3. LIVALO [Suspect]
     Route: 048
     Dates: end: 20070101

REACTIONS (1)
  - PEMPHIGOID [None]
